FAERS Safety Report 19226236 (Version 2)
Quarter: 2021Q3

REPORT INFORMATION
  Report Type: Report from Study
  Country: JP (occurrence: JP)
  Receive Date: 20210506
  Receipt Date: 20210830
  Transmission Date: 20211014
  Serious: Yes (Death, Hospitalization, Other)
  Sender: FDA-Public Use
  Company Number: JP-JNJFOC-A-CH2019-189410

PATIENT
  Age: 58 Year
  Sex: Female

DRUGS (6)
  1. TAKEPRON [Concomitant]
     Active Substance: LANSOPRAZOLE
     Indication: GASTROOESOPHAGEAL REFLUX DISEASE
     Route: 048
     Dates: start: 20180926
  2. BUFFERIN [ACETYLSALICYLIC ACID] [Concomitant]
     Indication: PERIPHERAL CIRCULATORY FAILURE
     Route: 048
     Dates: start: 20181228, end: 20190418
  3. BAYASPIRIN [Concomitant]
     Active Substance: ASPIRIN
     Indication: PERIPHERAL CIRCULATORY FAILURE
     Route: 048
     Dates: start: 20181128, end: 20181227
  4. PROCYLIN [Concomitant]
     Active Substance: BERAPROST SODIUM
     Indication: PERIPHERAL CIRCULATORY FAILURE
     Route: 048
     Dates: start: 20171129, end: 20181227
  5. TRACLEER [Suspect]
     Active Substance: BOSENTAN
     Indication: SKIN ULCER
     Dosage: 62.5 MG, BID
     Route: 048
     Dates: start: 20180824, end: 20180926
  6. TRACLEER [Suspect]
     Active Substance: BOSENTAN
     Dosage: 62.5 MG, QD
     Route: 048
     Dates: start: 20180927, end: 20200730

REACTIONS (6)
  - Aspartate aminotransferase increased [Recovered/Resolved]
  - Gamma-glutamyltransferase increased [Recovered/Resolved]
  - Liver disorder [Recovered/Resolved]
  - Blood alkaline phosphatase increased [Recovered/Resolved]
  - Alanine aminotransferase increased [Recovered/Resolved]
  - Lung neoplasm malignant [Fatal]

NARRATIVE: CASE EVENT DATE: 20180926
